FAERS Safety Report 9948863 (Version 1)
Quarter: 2014Q1

REPORT INFORMATION
  Report Type: Spontaneous
  Country: FR (occurrence: FR)
  Receive Date: 20140304
  Receipt Date: 20140304
  Transmission Date: 20141002
  Serious: Yes (Other)
  Sender: FDA-Public Use
  Company Number: FR-ACCORD-022247

PATIENT
  Age: 37 Year
  Sex: Female

DRUGS (1)
  1. DOCETAXEL [Suspect]
     Indication: PRODUCT USED FOR UNKNOWN INDICATION
     Dosage: ACCORD^S DOCETAXEL?EXPIRY DATE: 31-JUL-2015
     Route: 042
     Dates: start: 20131230

REACTIONS (2)
  - Product quality issue [Unknown]
  - Pelvic pain [Recovered/Resolved]
